FAERS Safety Report 23082808 (Version 2)
Quarter: 2023Q4

REPORT INFORMATION
  Report Type: Report from Study
  Country: RO (occurrence: RO)
  Receive Date: 20231019
  Receipt Date: 20231227
  Transmission Date: 20240109
  Serious: Yes (Other)
  Sender: FDA-Public Use
  Company Number: RO-Gedeon Richter Plc.-2023_GR_009378

PATIENT
  Age: 18 Year
  Sex: Male
  Weight: 89 kg

DRUGS (7)
  1. OLANZAPINE [Suspect]
     Active Substance: OLANZAPINE
     Indication: Schizophrenia
     Dosage: UNK
     Route: 065
     Dates: start: 2019
  2. OLANZAPINE [Suspect]
     Active Substance: OLANZAPINE
     Indication: Acute psychosis
  3. TOPIRAMATE [Suspect]
     Active Substance: TOPIRAMATE
     Indication: Schizophrenia
     Dosage: UNK
     Route: 065
     Dates: start: 2019
  4. TOPIRAMATE [Suspect]
     Active Substance: TOPIRAMATE
     Indication: Acute psychosis
  5. ARIPIPRAZOLE [Suspect]
     Active Substance: ARIPIPRAZOLE
     Indication: Schizophrenia
     Dosage: UNK
     Route: 065
     Dates: start: 2019
  6. ARIPIPRAZOLE [Suspect]
     Active Substance: ARIPIPRAZOLE
     Indication: Acute psychosis
  7. HALOPERIDOL [Suspect]
     Active Substance: HALOPERIDOL
     Indication: Schizophrenia
     Dosage: UNK
     Route: 065

REACTIONS (4)
  - Blood insulin abnormal [Recovering/Resolving]
  - Blood glucose increased [Recovering/Resolving]
  - Blood prolactin increased [Recovering/Resolving]
  - Akathisia [Recovered/Resolved]
